FAERS Safety Report 8932526 (Version 1)
Quarter: 2012Q4

REPORT INFORMATION
  Report Type: Spontaneous
  Country: US (occurrence: None)
  Receive Date: 20121121
  Receipt Date: 20121121
  Transmission Date: 20130627
  Serious: Yes (Hospitalization, Other)
  Sender: FDA-Public Use
  Company Number: None

PATIENT
  Sex: Female
  Weight: 48.08 kg

DRUGS (1)
  1. LEVOTHYROXINE 50MCG LANNETT [Suspect]
     Indication: HYPOTHYROIDISM
     Dosage: 50 mcg 1 Tablet Daily
     Dates: start: 2010

REACTIONS (21)
  - Decreased appetite [None]
  - Heart rate irregular [None]
  - Arthralgia [None]
  - Mood altered [None]
  - Muscular weakness [None]
  - Headache [None]
  - Fatigue [None]
  - Muscle spasms [None]
  - Tremor [None]
  - Rash [None]
  - Urticaria [None]
  - Pruritus [None]
  - Flushing [None]
  - Dyspnoea [None]
  - Chest discomfort [None]
  - Dysphonia [None]
  - Confusional state [None]
  - Disorientation [None]
  - Convulsion [None]
  - Nervousness [None]
  - Anxiety [None]
